FAERS Safety Report 14157181 (Version 1)
Quarter: 2017Q4

REPORT INFORMATION
  Report Type: Spontaneous
  Country: FR (occurrence: FR)
  Receive Date: 20171103
  Receipt Date: 20171103
  Transmission Date: 20180321
  Serious: Yes (Hospitalization)
  Sender: FDA-Public Use
  Company Number: FR-JNJFOC-20171031914

PATIENT
  Age: 91 Year
  Sex: Female

DRUGS (2)
  1. ZYLORIC [Concomitant]
     Active Substance: ALLOPURINOL
     Dosage: GIVEN SINCE SEVERAL YEARS AT UNKNOWN DOSE AND FREQUENCY
     Route: 065
  2. IMBRUVICA [Suspect]
     Active Substance: IBRUTINIB
     Indication: CHRONIC LYMPHOCYTIC LEUKAEMIA
     Route: 048
     Dates: start: 20170627, end: 20170713

REACTIONS (2)
  - Toxic skin eruption [Recovering/Resolving]
  - Haematoma [Unknown]

NARRATIVE: CASE EVENT DATE: 20170701
